FAERS Safety Report 6960962-5 (Version None)
Quarter: 2010Q3

REPORT INFORMATION
  Report Type: 
  Country: None (occurrence: None)
  Receive Date: 20100830
  Receipt Date: 20100823
  Transmission Date: 20110219
  Serious: Yes (Other)
  Sender: FDA-Public Use
  Company Number: 2010SP034248

PATIENT
  Age: 37 Year
  Sex: Male

DRUGS (9)
  1. CLARINEX [Suspect]
     Indication: RHINITIS ALLERGIC
     Dosage: 5 MG;QD;PO
     Route: 048
     Dates: start: 20081020, end: 20100609
  2. CLARINEX-D 12 HOUR [Suspect]
     Indication: HEADACHE
     Dosage: QAM;PO
     Route: 048
     Dates: start: 20081020, end: 20100609
  3. CLARINEX-D 12 HOUR [Suspect]
     Indication: NASAL CONGESTION
     Dosage: QAM;PO
     Route: 048
     Dates: start: 20081020, end: 20100609
  4. ASTELIN [Concomitant]
  5. VERAMYST [Concomitant]
  6. FLUTICASONE PROPIONATE [Concomitant]
  7. BENADRYL [Concomitant]
  8. NEXIUM [Concomitant]
  9. SINGULAIR [Concomitant]

REACTIONS (1)
  - HORNER'S SYNDROME [None]
